FAERS Safety Report 18466462 (Version 1)
Quarter: 2020Q4

REPORT INFORMATION
  Report Type: Spontaneous
  Country: US (occurrence: US)
  Receive Date: 20201105
  Receipt Date: 20201105
  Transmission Date: 20210114
  Serious: Yes (Other)
  Sender: FDA-Public Use
  Company Number: US-TEVA-2020-US-1844336

PATIENT
  Age: 62 Year
  Sex: Female

DRUGS (9)
  1. AUSTEDO [Suspect]
     Active Substance: DEUTETRABENAZINE
     Indication: TARDIVE DYSKINESIA
     Dosage: 6 MILLIGRAM DAILY;
     Route: 065
     Dates: start: 20201014, end: 20201028
  2. REXULTI [Concomitant]
     Active Substance: BREXPIPRAZOLE
     Route: 048
  3. VENLAFAXINE HCL [Concomitant]
     Active Substance: VENLAFAXINE HYDROCHLORIDE
     Route: 048
  4. REXULTI [Concomitant]
     Active Substance: BREXPIPRAZOLE
     Route: 048
  5. MELOXICAM. [Concomitant]
     Active Substance: MELOXICAM
     Route: 048
  6. OMEPRAZOLE. [Concomitant]
     Active Substance: OMEPRAZOLE
     Route: 048
  7. VENLAFAXINE HCL [Concomitant]
     Active Substance: VENLAFAXINE HYDROCHLORIDE
     Route: 048
  8. GABAPENTIN. [Concomitant]
     Active Substance: GABAPENTIN
     Route: 048
  9. LAMOTRIGINE. [Concomitant]
     Active Substance: LAMOTRIGINE
     Route: 048

REACTIONS (5)
  - Suicidal ideation [Unknown]
  - Nasal discomfort [Unknown]
  - Insomnia [Unknown]
  - Depression [Unknown]
  - Aggression [Unknown]
